FAERS Safety Report 11044021 (Version 1)
Quarter: 2015Q2

REPORT INFORMATION
  Report Type: Spontaneous
  Country: US (occurrence: US)
  Receive Date: 20150417
  Receipt Date: 20150417
  Transmission Date: 20150821
  Serious: Yes (Hospitalization, Congenital Anomaly, Other)
  Sender: FDA-Public Use
  Company Number: US-PERRIGO-15US003862

PATIENT
  Age: 0 Year
  Sex: Male
  Weight: 1.36 kg

DRUGS (1)
  1. BUTOCONAZOLE NITRATE 2% 8F2 [Suspect]
     Active Substance: BUTOCONAZOLE NITRATE
     Indication: FOETAL EXPOSURE DURING PREGNANCY
     Dosage: UNK, SINGLE
     Route: 065
     Dates: start: 20140912, end: 20140912

REACTIONS (7)
  - Premature baby [Not Recovered/Not Resolved]
  - Respiration abnormal [Recovered/Resolved]
  - Maternal drugs affecting foetus [None]
  - Congenital central nervous system anomaly [Not Recovered/Not Resolved]
  - Foetal exposure during pregnancy [Recovered/Resolved]
  - Congenital multiplex arthrogryposis [Not Recovered/Not Resolved]
  - Talipes [Not Recovered/Not Resolved]

NARRATIVE: CASE EVENT DATE: 20140912
